FAERS Safety Report 20349920 (Version 1)
Quarter: 2022Q1

REPORT INFORMATION
  Report Type: Spontaneous
  Country: US (occurrence: None)
  Receive Date: 20220117
  Receipt Date: 20220117
  Transmission Date: 20220423
  Serious: Yes (Life-Threatening, Hospitalization, Disabling)
  Sender: FDA-Public Use
  Company Number: None

PATIENT
  Age: 48 Year
  Sex: Male
  Weight: 63 kg

DRUGS (1)
  1. ALLOPURINOL [Suspect]
     Active Substance: ALLOPURINOL
     Indication: Gout
     Dosage: OTHER QUANTITY : 1 TABLET(S);?FREQUENCY : DAILY;?
     Route: 048
     Dates: start: 20211122, end: 20211124

REACTIONS (17)
  - Ocular hyperaemia [None]
  - Rash [None]
  - Viral infection [None]
  - Conjunctivitis [None]
  - Pyrexia [None]
  - Stevens-Johnson syndrome [None]
  - Toxic epidermal necrolysis [None]
  - Pain [None]
  - Altered state of consciousness [None]
  - Memory impairment [None]
  - Thrombosis [None]
  - Skin operation [None]
  - Eye operation [None]
  - Throat lesion [None]
  - Scar [None]
  - Skin discolouration [None]
  - Near death experience [None]

NARRATIVE: CASE EVENT DATE: 20211125
